FAERS Safety Report 4925765-1 (Version None)
Quarter: 2006Q1

REPORT INFORMATION
  Report Type: 
  Country: None (occurrence: None)
  Receive Date: 20060228
  Receipt Date: 20050316
  Transmission Date: 20060701
  Serious: No
  Sender: FDA-Public Use
  Company Number: US-GLAXOSMITHKLINE-A0550084A

PATIENT
  Age: 17 Year
  Sex: Male

DRUGS (3)
  1. LAMICTAL [Suspect]
     Dosage: 25MG PER DAY
     Route: 048
  2. TEGRETOL [Concomitant]
  3. LITHIUM [Concomitant]

REACTIONS (2)
  - MYALGIA [None]
  - PAIN [None]
